FAERS Safety Report 7764967-6 (Version None)
Quarter: 2011Q3

REPORT INFORMATION
  Report Type: 
  Country: None (occurrence: None)
  Receive Date: 20110921
  Receipt Date: 20110910
  Transmission Date: 20111222
  Serious: Yes (Other)
  Sender: FDA-Public Use
  Company Number: PL-ROCHE-802233

PATIENT
  Age: 55 Year
  Sex: Male

DRUGS (4)
  1. XELODA [Suspect]
     Indication: METASTATIC GASTRIC CANCER
     Route: 065
     Dates: start: 20110211, end: 20110712
  2. HERCEPTIN [Suspect]
     Indication: METASTATIC GASTRIC CANCER
     Route: 065
     Dates: start: 20110211
  3. CISPLATIN [Suspect]
     Indication: METASTATIC GASTRIC CANCER
     Route: 065
     Dates: start: 20110211
  4. HERCEPTIN [Suspect]
     Route: 065

REACTIONS (3)
  - EJECTION FRACTION DECREASED [None]
  - THROMBOCYTOPENIA [None]
  - NEUTROPENIA [None]
